FAERS Safety Report 13120202 (Version 2)
Quarter: 2017Q3

REPORT INFORMATION
  Report Type: Spontaneous
  Country: US (occurrence: US)
  Receive Date: 20170117
  Receipt Date: 20170714
  Transmission Date: 20171127
  Serious: No
  Sender: FDA-Public Use
  Company Number: US-TEVA-705489USA

PATIENT
  Sex: Female

DRUGS (13)
  1. ARNUITY ELLIPTA [Concomitant]
     Active Substance: FLUTICASONE FUROATE
     Dosage: PUFF DAILY
  2. PULMICORT TURBUHALER [Concomitant]
     Active Substance: BUDESONIDE
     Dosage: DAILY
  3. VITAMIN D [Concomitant]
     Active Substance: CHOLECALCIFEROL
  4. PREDNISONE. [Concomitant]
     Active Substance: PREDNISONE
     Dosage: 5 MILLIGRAM DAILY;
  5. ALENDRONATE SODIUM. [Concomitant]
     Active Substance: ALENDRONATE SODIUM
     Dosage: WEEKLY
  6. IOPROST [Concomitant]
     Indication: GLAUCOMA
     Dosage: ONE DROP IN EACH EYE TWICE A DAY
  7. MIRTAZAPINE. [Concomitant]
     Active Substance: MIRTAZAPINE
     Dosage: IN THE PM
  8. HYDROXYUREA. [Concomitant]
     Active Substance: HYDROXYUREA
  9. TUMS [Concomitant]
     Active Substance: CALCIUM CARBONATE
     Dosage: 2
  10. ASPIRIN. [Concomitant]
     Active Substance: ASPIRIN
  11. CENTRUM [Concomitant]
     Active Substance: VITAMINS
  12. PROAIR RESPICLICK [Suspect]
     Active Substance: ALBUTEROL SULFATE
     Dosage: 2 PUFFS EVERY 5 HOURS AS NEEDED
     Dates: end: 20161116
  13. LATANOPROST. [Concomitant]
     Active Substance: LATANOPROST
     Indication: GLAUCOMA
     Dosage: ONE DROP BOTH EYES PM

REACTIONS (4)
  - Malaise [Unknown]
  - Panic attack [Recovered/Resolved]
  - Product physical issue [Unknown]
  - Drug ineffective [Unknown]
